FAERS Safety Report 20871659 (Version 2)
Quarter: 2022Q2

REPORT INFORMATION
  Report Type: Report from Study
  Country: KR (occurrence: KR)
  Receive Date: 20220525
  Receipt Date: 20220620
  Transmission Date: 20220720
  Serious: Yes (Hospitalization)
  Sender: FDA-Public Use
  Company Number: KR-ONO-2022KR013777

PATIENT
  Age: 67 Year
  Sex: Male
  Weight: 54 kg

DRUGS (23)
  1. IPILIMUMAB [Suspect]
     Active Substance: IPILIMUMAB
     Indication: Gastric cancer
     Route: 065
     Dates: start: 20220405, end: 20220405
  2. IPILIMUMAB [Suspect]
     Active Substance: IPILIMUMAB
     Route: 065
     Dates: start: 20220530, end: 20220530
  3. TS-1 [Suspect]
     Active Substance: GIMERACIL\OTERACIL\TEGAFUR
     Indication: Gastric cancer
     Dosage: 60 MG/M2
     Route: 048
     Dates: start: 20220405, end: 20220418
  4. TS-1 [Suspect]
     Active Substance: GIMERACIL\OTERACIL\TEGAFUR
     Dosage: 60 MG/M2
     Route: 048
     Dates: start: 20220406, end: 20220419
  5. TS-1 [Suspect]
     Active Substance: GIMERACIL\OTERACIL\TEGAFUR
     Route: 048
     Dates: start: 20220426, end: 20220509
  6. TS-1 [Suspect]
     Active Substance: GIMERACIL\OTERACIL\TEGAFUR
     Route: 048
     Dates: start: 20220427, end: 20220510
  7. OXALIPLATIN [Suspect]
     Active Substance: OXALIPLATIN
     Indication: Gastric cancer
     Route: 065
     Dates: start: 20220405, end: 20220405
  8. OXALIPLATIN [Suspect]
     Active Substance: OXALIPLATIN
     Route: 065
     Dates: start: 20220426, end: 20220426
  9. DEXAMETHASONE [Concomitant]
     Active Substance: DEXAMETHASONE
     Indication: Product used for unknown indication
     Route: 065
     Dates: start: 20220405
  10. DEXAMETHASONE [Concomitant]
     Active Substance: DEXAMETHASONE
     Route: 065
     Dates: start: 20220426, end: 20220426
  11. ALOXI [Concomitant]
     Active Substance: PALONOSETRON HYDROCHLORIDE
     Indication: Product used for unknown indication
     Dosage: 0.25 MG
     Route: 065
     Dates: start: 20220405, end: 20220405
  12. ALOXI [Concomitant]
     Active Substance: PALONOSETRON HYDROCHLORIDE
     Dosage: 0.25 MG
     Route: 065
     Dates: start: 20220426, end: 20220426
  13. FEBUXOSTAT [Concomitant]
     Active Substance: FEBUXOSTAT
     Indication: Gout
     Dosage: 40 UG
     Route: 048
  14. CHLORPHENIRAMINE MALEATE [Concomitant]
     Active Substance: CHLORPHENIRAMINE MALEATE
     Indication: Product used for unknown indication
     Route: 065
     Dates: start: 20220513, end: 20220513
  15. UREA [Concomitant]
     Active Substance: UREA
     Indication: Dry skin
     Route: 065
     Dates: start: 20220426, end: 20220514
  16. UREA [Concomitant]
     Active Substance: UREA
     Route: 065
     Dates: start: 20220516
  17. WELLCON [Concomitant]
     Indication: Product used for unknown indication
     Route: 065
  18. SynthyroXIN [Concomitant]
     Indication: Product used for unknown indication
     Route: 065
  19. ACETPHEN PREMIX [Concomitant]
     Indication: Product used for unknown indication
  20. AGIO Gran [Concomitant]
     Indication: Product used for unknown indication
  21. MEGACE [Concomitant]
     Active Substance: MEGESTROL ACETATE
     Indication: Product used for unknown indication
     Dosage: F SUSPENSION
  22. Sinilm [Concomitant]
     Indication: Product used for unknown indication
  23. DERMOTASONE [Concomitant]
     Indication: Product used for unknown indication

REACTIONS (1)
  - Dehydration [Recovered/Resolved]

NARRATIVE: CASE EVENT DATE: 20220513
